FAERS Safety Report 6612615-0 (Version None)
Quarter: 2010Q1

REPORT INFORMATION
  Report Type: 
  Country: None (occurrence: None)
  Receive Date: 20100303
  Receipt Date: 20100219
  Transmission Date: 20100710
  Serious: Yes (Hospitalization)
  Sender: FDA-Public Use
  Company Number: FR-PFIZER INC-2010021892

PATIENT
  Age: 83 Year
  Sex: Female

DRUGS (18)
  1. XANAX [Suspect]
     Dosage: 0.25 MG, 1X/DAY
     Route: 048
     Dates: end: 20091207
  2. VAXIGRIP [Suspect]
     Indication: INFLUENZA IMMUNISATION
     Dosage: 1 DF, SINGLE
     Route: 030
     Dates: start: 20091015, end: 20091015
  3. ZOPICLONE [Suspect]
     Dosage: 1 DF, 1X/DAY
     Route: 048
     Dates: end: 20091207
  4. HYPERIUM [Suspect]
     Dosage: 1 MG, 1X/DAY
     Dates: end: 20091207
  5. LERCAN [Suspect]
     Dosage: 20 MG, 1X/DAY
     Route: 048
     Dates: end: 20091207
  6. TAREG [Suspect]
     Dosage: 160 MG, 1X/DAY
     Route: 048
     Dates: end: 20091207
  7. FENOFIBRATE [Suspect]
     Dosage: 200 MG, 1X/DAY
     Dates: end: 20091207
  8. ASPEGIC 1000 [Concomitant]
     Indication: THROMBOCYTOPENIC PURPURA
     Dosage: 100 MG PER DAY
     Dates: start: 20050101, end: 20091207
  9. ASPEGIC 1000 [Concomitant]
     Dosage: UNK
     Dates: end: 20091211
  10. CORTANCYL [Concomitant]
     Indication: THROMBOCYTOPENIC PURPURA
     Dosage: 5 MG PER DAY
     Dates: start: 20050101, end: 20091210
  11. DIFFU K [Concomitant]
     Dosage: UNK
     Dates: end: 20091207
  12. DIFFU K [Concomitant]
     Dosage: UNK
  13. FORLAX [Concomitant]
     Dosage: UNK
     Dates: end: 20091207
  14. FORLAX [Concomitant]
     Dosage: UNK
  15. DOLIPRANE [Concomitant]
     Dosage: UNK
  16. TPN [Concomitant]
     Dosage: UNK
     Dates: end: 20091207
  17. LASILIX [Concomitant]
     Dosage: UNK
     Dates: end: 20091207
  18. LASILIX [Concomitant]
     Dosage: UNK

REACTIONS (1)
  - AGRANULOCYTOSIS [None]
